FAERS Safety Report 10343228 (Version 3)
Quarter: 2014Q3

REPORT INFORMATION
  Report Type: Spontaneous
  Country: US (occurrence: US)
  Receive Date: 20140725
  Receipt Date: 20140821
  Transmission Date: 20150326
  Serious: Yes (Hospitalization)
  Sender: FDA-Public Use
  Company Number: US-BIOMARINAP-US-2014-103731

PATIENT
  Age: 7 Year
  Sex: Male

DRUGS (1)
  1. NAGLAZYME [Suspect]
     Active Substance: GALSULFASE
     Indication: MUCOPOLYSACCHARIDOSIS IV
     Dosage: 15 MG, QW
     Route: 041
     Dates: start: 20120229

REACTIONS (3)
  - Tethered cord syndrome [Unknown]
  - Kyphoscoliosis [Unknown]
  - Device related infection [Unknown]

NARRATIVE: CASE EVENT DATE: 20140721
